FAERS Safety Report 5297609-2 (Version None)
Quarter: 2007Q2

REPORT INFORMATION
  Report Type: 
  Country: None (occurrence: None)
  Receive Date: 20070416
  Receipt Date: 20070406
  Transmission Date: 20071010
  Serious: Yes (Hospitalization)
  Sender: FDA-Public Use
  Company Number: US-ROCHE-477655

PATIENT
  Sex: Female

DRUGS (1)
  1. LARIAM [Suspect]
     Indication: MALARIA PROPHYLAXIS
     Dosage: THE PATIENT REPORTED TAKING THREE LARIAM ^PILLS^ IN NOVEMBER 2004 OVER THE COURSE OF THREE WEEKS.
     Route: 065
     Dates: start: 20041115, end: 20041115

REACTIONS (9)
  - AGGRESSION [None]
  - CONVULSION [None]
  - HALLUCINATION [None]
  - INSOMNIA [None]
  - NIGHTMARE [None]
  - PSYCHOTIC DISORDER [None]
  - SUICIDAL IDEATION [None]
  - THINKING ABNORMAL [None]
  - VESTIBULAR DISORDER [None]
